FAERS Safety Report 23358043 (Version 1)
Quarter: 2023Q4

REPORT INFORMATION
  Report Type: Spontaneous
  Country: US (occurrence: None)
  Receive Date: 20231229
  Receipt Date: 20231229
  Transmission Date: 20240110
  Serious: No
  Sender: FDA-Public Use
  Company Number: None

PATIENT
  Sex: Male

DRUGS (1)
  1. DYE-FREE CHILDRENS LORATADINE [Suspect]
     Active Substance: LORATADINE

REACTIONS (3)
  - Product dose omission in error [None]
  - Product appearance confusion [None]
  - Product identification number issue [None]

NARRATIVE: CASE EVENT DATE: 20231015
